FAERS Safety Report 4523718-9 (Version None)
Quarter: 2004Q4

REPORT INFORMATION
  Report Type: 
  Country: None (occurrence: None)
  Receive Date: 20041210
  Receipt Date: 20041207
  Transmission Date: 20050328
  Serious: Yes (Other)
  Sender: FDA-Public Use
  Company Number: DE-GLAXOSMITHKLINE-D0045431A

PATIENT
  Sex: Male

DRUGS (1)
  1. LEUKERAN [Suspect]
     Dosage: 2MG UNKNOWN
     Route: 048
     Dates: start: 20040201

REACTIONS (2)
  - DYSPNOEA [None]
  - OBSTRUCTIVE AIRWAYS DISORDER [None]
